FAERS Safety Report 22130207 (Version 1)
Quarter: 2023Q1

REPORT INFORMATION
  Report Type: Report from Study
  Country: US (occurrence: US)
  Receive Date: 20230323
  Receipt Date: 20230323
  Transmission Date: 20230418
  Serious: No
  Sender: FDA-Public Use
  Company Number: US-INCYTE CORPORATION-2023IN001510

PATIENT

DRUGS (2)
  1. JAKAFI [Suspect]
     Active Substance: RUXOLITINIB
     Indication: Leukaemia
     Dosage: 5 MILLIGRAM, BID
     Route: 065
  2. JAKAFI [Suspect]
     Active Substance: RUXOLITINIB
     Indication: Splenomegaly

REACTIONS (12)
  - Contusion [Unknown]
  - Oedema peripheral [Unknown]
  - Headache [Unknown]
  - Full blood count abnormal [Unknown]
  - Platelet count abnormal [Unknown]
  - Haemoglobin abnormal [Unknown]
  - Splenomegaly [Unknown]
  - COVID-19 [Unknown]
  - Drug ineffective for unapproved indication [Unknown]
  - Pain [Unknown]
  - Ureteral stent insertion [Unknown]
  - Off label use [Unknown]

NARRATIVE: CASE EVENT DATE: 20221001
